FAERS Safety Report 6875789-2 (Version None)
Quarter: 2010Q3

REPORT INFORMATION
  Report Type: 
  Country: None (occurrence: None)
  Receive Date: 20100727
  Receipt Date: 20070730
  Transmission Date: 20110219
  Serious: Yes (Hospitalization, Disabling, Other)
  Sender: FDA-Public Use
  Company Number: US-PFIZER INC-2006141149

PATIENT
  Sex: Male
  Weight: 104.3 kg

DRUGS (7)
  1. CELEBREX [Suspect]
     Indication: ARTHRITIS
     Route: 048
     Dates: start: 20011114
  2. ACETAMINOPHEN [Concomitant]
  3. MORPHINE [Concomitant]
  4. DEMEROL [Concomitant]
  5. ASPIRIN [Concomitant]
  6. ALEVE (CAPLET) [Concomitant]
  7. VIOXX [Concomitant]

REACTIONS (1)
  - MYOCARDIAL INFARCTION [None]
